FAERS Safety Report 9734985 (Version 1)
Quarter: 2013Q4

REPORT INFORMATION
  Report Type: Spontaneous
  Country: AU (occurrence: AU)
  Receive Date: 20131206
  Receipt Date: 20131206
  Transmission Date: 20140711
  Serious: No
  Sender: FDA-Public Use
  Company Number: AU-009507513-1311AUS012302

PATIENT
  Age: 31 Year
  Sex: Female

DRUGS (2)
  1. ASENAPINE MALEATE [Suspect]
     Dosage: 5 MG, UNK
     Route: 048
     Dates: start: 20130902, end: 20130902
  2. QUETIAPINE FUMARATE [Concomitant]
     Dosage: UNKNOWN

REACTIONS (5)
  - Flushing [Recovered/Resolved]
  - Hypertonia [Recovered/Resolved]
  - Anxiety [Recovered/Resolved]
  - Hypertension [Recovered/Resolved]
  - Tachycardia [Recovered/Resolved]
